FAERS Safety Report 18503386 (Version 1)
Quarter: 2020Q4

REPORT INFORMATION
  Report Type: Spontaneous
  Country: FR (occurrence: FR)
  Receive Date: 20201113
  Receipt Date: 20201113
  Transmission Date: 20210114
  Serious: Yes (Hospitalization)
  Sender: FDA-Public Use
  Company Number: FR-PFIZER INC-2020430915

PATIENT
  Age: 73 Year
  Sex: Male

DRUGS (1)
  1. TOVIAZ [Suspect]
     Active Substance: FESOTERODINE FUMARATE
     Dosage: 8 MG, SINGLE
     Dates: start: 20201101

REACTIONS (4)
  - Anuria [Unknown]
  - Urinary tract infection [Unknown]
  - Prostatitis [Unknown]
  - Dysuria [Unknown]

NARRATIVE: CASE EVENT DATE: 20201102
